FAERS Safety Report 9736333 (Version 2)
Quarter: 2014Q1

REPORT INFORMATION
  Report Type: Report from Study
  Country: US (occurrence: US)
  Receive Date: 20131206
  Receipt Date: 20140121
  Transmission Date: 20141002
  Serious: Yes (Hospitalization, Other)
  Sender: FDA-Public Use
  Company Number: US-ALEXION-A201304009

PATIENT
  Sex: 0

DRUGS (1)
  1. SOLIRIS [Suspect]
     Indication: PAROXYSMAL NOCTURNAL HAEMOGLOBINURIA
     Dosage: UNK
     Route: 042

REACTIONS (12)
  - Bone marrow disorder [Unknown]
  - Platelet count decreased [Unknown]
  - Malaise [Unknown]
  - Haemoglobin decreased [Unknown]
  - Myelodysplastic syndrome [Unknown]
  - Chromaturia [Unknown]
  - Candida infection [Unknown]
  - Weight decreased [Unknown]
  - Productive cough [Unknown]
  - Decreased appetite [Unknown]
  - Nausea [Unknown]
  - Fatigue [Unknown]
